FAERS Safety Report 12081994 (Version 3)
Quarter: 2016Q4

REPORT INFORMATION
  Report Type: Spontaneous
  Country: US (occurrence: US)
  Receive Date: 20160216
  Receipt Date: 20161213
  Transmission Date: 20170206
  Serious: Yes (Hospitalization)
  Sender: FDA-Public Use
  Company Number: US-ROCHE-1708339

PATIENT
  Age: 64 Year
  Sex: Female
  Weight: 95 kg

DRUGS (2)
  1. ACTIVASE [Suspect]
     Active Substance: ALTEPLASE
     Indication: CEREBRAL INFARCTION
  2. ACTIVASE [Suspect]
     Active Substance: ALTEPLASE
     Indication: CEREBROVASCULAR ACCIDENT
     Dosage: 8.5 BOLUS 76 INFUSION
     Route: 042

REACTIONS (4)
  - Anaphylactic reaction [Recovered/Resolved]
  - Angioedema [Recovered/Resolved]
  - Urticaria [Not Recovered/Not Resolved]
  - Product quality issue [Unknown]
